FAERS Safety Report 6965785-9 (Version None)
Quarter: 2010Q3

REPORT INFORMATION
  Report Type: 
  Country: None (occurrence: None)
  Receive Date: 20100903
  Receipt Date: 20100825
  Transmission Date: 20110219
  Serious: Yes (Hospitalization)
  Sender: FDA-Public Use
  Company Number: US-ASTRAZENECA-2010SE39981

PATIENT
  Age: 60 Year
  Sex: Female
  Weight: 79.4 kg

DRUGS (9)
  1. NEXIUM [Suspect]
     Indication: GASTROOESOPHAGEAL REFLUX DISEASE
     Route: 048
     Dates: start: 20060101
  2. SUCRALFATE [Concomitant]
  3. MAGOX [Concomitant]
  4. NA BICOARB [Concomitant]
  5. LOMOTIL [Concomitant]
  6. LOPERAMIDE [Concomitant]
  7. HYDROXYZINE HCL [Concomitant]
  8. POTASSIUM [Concomitant]
  9. AMLODIPINE [Concomitant]

REACTIONS (2)
  - ABDOMINAL ADHESIONS [None]
  - ILEUS [None]
